FAERS Safety Report 24812831 (Version 1)
Quarter: 2025Q1

REPORT INFORMATION
  Report Type: Spontaneous
  Country: US (occurrence: US)
  Receive Date: 20250107
  Receipt Date: 20250107
  Transmission Date: 20250409
  Serious: No
  Sender: CHATTEM
  Company Number: US-OPELLA-2025OHG000034

PATIENT

DRUGS (5)
  1. ALLEGRA [Suspect]
     Active Substance: FEXOFENADINE HYDROCHLORIDE
     Indication: Hypersensitivity
     Dosage: IN THE AM
  2. FAMOTIDINE [Suspect]
     Active Substance: FAMOTIDINE
     Indication: Hypersensitivity
     Dosage: IN THE AM
  3. ACCOLATE [Suspect]
     Active Substance: ZAFIRLUKAST
     Indication: Hypersensitivity
     Dates: start: 202412
  4. SINGULAIR [Suspect]
     Active Substance: MONTELUKAST SODIUM
     Indication: Hypersensitivity
  5. DOXEPIN [Suspect]
     Active Substance: DOXEPIN
     Indication: Hypersensitivity
     Dosage: IN THE PM

REACTIONS (1)
  - Hypersensitivity [Unknown]
